FAERS Safety Report 7580393-7 (Version None)
Quarter: 2011Q2

REPORT INFORMATION
  Report Type: 
  Country: None (occurrence: None)
  Receive Date: 20110629
  Receipt Date: 20110624
  Transmission Date: 20111010
  Serious: Yes (Death)
  Sender: FDA-Public Use
  Company Number: CN-ROCHE-785293

PATIENT
  Sex: Female

DRUGS (2)
  1. SANDIMMUNE [Concomitant]
     Indication: RENAL TRANSPLANT
     Dates: start: 20070201
  2. MYCOPHENOLATE MEFETIL [Suspect]
     Indication: RENAL TRANSPLANT
     Dosage: 750 MG IN THE MORNING, 750 MG IN THE EVENING.
     Route: 048
     Dates: start: 20070201

REACTIONS (1)
  - DEATH [None]
